FAERS Safety Report 8397297-2 (Version None)
Quarter: 2012Q2

REPORT INFORMATION
  Report Type: 
  Country: None (occurrence: None)
  Receive Date: 20120531
  Receipt Date: 20120523
  Transmission Date: 20120825
  Serious: Yes (Hospitalization, Other)
  Sender: FDA-Public Use
  Company Number: US-BIOGENIDEC-2012BI012450

PATIENT
  Sex: Male

DRUGS (4)
  1. AVONEX [Suspect]
     Route: 030
     Dates: start: 20120323
  2. AVONEX [Suspect]
     Route: 030
     Dates: start: 20080101, end: 20081021
  3. AVONEX [Suspect]
     Indication: MULTIPLE SCLEROSIS
     Route: 030
     Dates: end: 20070324
  4. AVONEX [Suspect]
     Route: 030
     Dates: end: 20080723

REACTIONS (5)
  - NEOPLASM PROSTATE [None]
  - CALCULUS BLADDER [None]
  - ASTHENIA [None]
  - APATHY [None]
  - BLADDER NEOPLASM [None]
